FAERS Safety Report 9439294 (Version 1)
Quarter: 2013Q3

REPORT INFORMATION
  Report Type: Report from Study
  Country: US (occurrence: US)
  Receive Date: 20130804
  Receipt Date: 20130804
  Transmission Date: 20140515
  Serious: Yes (Death)
  Sender: FDA-Public Use
  Company Number: US-ROCHE-1256760

PATIENT
  Age: 69 Year
  Sex: 0

DRUGS (10)
  1. RITUXIMAB [Suspect]
     Indication: BURKITT^S LYMPHOMA
     Dosage: DAY 1 AND 8
     Route: 042
  2. FILGRASTIM [Suspect]
     Indication: BURKITT^S LYMPHOMA
     Dosage: DAY 3
     Route: 058
  3. CYCLOPHOSPHAMIDE [Suspect]
     Indication: BURKITT^S LYMPHOMA
     Dosage: DAY 1
     Route: 042
  4. VINCRISTINE [Suspect]
     Indication: BURKITT^S LYMPHOMA
     Dosage: 2 MG CAPSULE, DAY 1
     Route: 042
  5. METHOTREXATE [Suspect]
     Indication: BURKITT^S LYMPHOMA
     Dosage: 3 G/M2, DAY 8
     Route: 042
  6. LEUCOVORIN [Suspect]
     Indication: BURKITT^S LYMPHOMA
     Dosage: 24 HOURS AFTER START OF METHOTREXATE, UNTIL CLEARANCE
     Route: 042
  7. CYTARABINE [Suspect]
     Indication: BURKITT^S LYMPHOMA
     Route: 037
  8. PREDNISONE [Suspect]
     Indication: BURKITT^S LYMPHOMA
     Dosage: DAY 1-5
     Route: 048
  9. MESNA [Suspect]
     Indication: BURKITT^S LYMPHOMA
     Dosage: ON DAY 1, IN DIVIDED DOSES
     Route: 042
  10. HYDROCORTISONE [Suspect]
     Indication: BURKITT^S LYMPHOMA
     Route: 037

REACTIONS (2)
  - Multi-organ failure [Fatal]
  - Fungaemia [Fatal]
